FAERS Safety Report 7413042-9 (Version None)
Quarter: 2011Q2

REPORT INFORMATION
  Report Type: 
  Country: None (occurrence: None)
  Receive Date: 20110413
  Receipt Date: 20110405
  Transmission Date: 20111010
  Serious: Yes (Other)
  Sender: FDA-Public Use
  Company Number: US-US-EMD SERONO, INC.-7046282

PATIENT
  Sex: Female

DRUGS (2)
  1. MOTRIN [Concomitant]
     Indication: PREMEDICATION
  2. REBIF [Suspect]
     Indication: PRODUCT USED FOR UNKNOWN INDICATION
     Route: 058
     Dates: start: 20100302

REACTIONS (7)
  - DIARRHOEA [None]
  - FATIGUE [None]
  - RAYNAUD'S PHENOMENON [None]
  - WEIGHT INCREASED [None]
  - BACK PAIN [None]
  - PYREXIA [None]
  - HEADACHE [None]
